FAERS Safety Report 14536895 (Version 18)
Quarter: 2018Q3

REPORT INFORMATION
  Report Type: Report from Study
  Country: DE (occurrence: DE)
  Receive Date: 20180215
  Receipt Date: 20180927
  Transmission Date: 20181010
  Serious: Yes (Hospitalization, Other)
  Sender: FDA-Public Use
  Company Number: DE-PFIZER INC-2017108464

PATIENT
  Age: 57 Year
  Sex: Female
  Weight: 55 kg

DRUGS (18)
  1. EXEMESTANE. [Suspect]
     Active Substance: EXEMESTANE
     Indication: BREAST CANCER METASTATIC
     Dosage: 25 MG, DAILY (CUMULATIVE DOSE TO FIRST REACTION: 7250 MG)
     Route: 048
     Dates: start: 20160523, end: 20170126
  2. DOXORUBICIN [Suspect]
     Active Substance: DOXORUBICIN
     Indication: B-CELL LYMPHOMA
     Dosage: 95 MG, 1X/DAY
     Route: 042
     Dates: start: 20171012, end: 20171012
  3. TAMSULOSIN [Concomitant]
     Active Substance: TAMSULOSIN
     Indication: BENIGN PROSTATIC HYPERPLASIA
     Dosage: 4 MG, 1X/DAY
     Route: 048
     Dates: start: 20170101
  4. TAMSULOSIN [Concomitant]
     Active Substance: TAMSULOSIN
     Dosage: 4 MG, 1X/DAY (CUMULATIVE DOSE TO FIRST REACTION 60 MG)
     Route: 048
     Dates: start: 20171010
  5. AFINITOR [Suspect]
     Active Substance: EVEROLIMUS
     Indication: BREAST CANCER METASTATIC
     Dosage: 10 MG, 1X/DAY
     Route: 048
     Dates: start: 20160523, end: 20160808
  6. PREDNISOLONE. [Suspect]
     Active Substance: PREDNISOLONE
     Indication: B-CELL LYMPHOMA
     Dosage: 20 MG, 1X/DAY
     Dates: start: 20170213
  7. SIMVASTATIN. [Concomitant]
     Active Substance: SIMVASTATIN
     Indication: HYPERCHOLESTEROLAEMIA
     Dosage: 20 MG, DAILY (CUMULATIVE DOSE TO FIRST REACTION 300 MG)
     Route: 048
     Dates: start: 20171010
  8. MABTHERA [Suspect]
     Active Substance: RITUXIMAB
     Indication: B-CELL LYMPHOMA
     Dosage: 700 MG, 1X/DAY
     Route: 042
     Dates: start: 20171011, end: 20171011
  9. MABTHERA [Suspect]
     Active Substance: RITUXIMAB
     Dosage: 15400 MG, UNK
     Route: 042
  10. ASPIRIN. [Concomitant]
     Active Substance: ASPIRIN
     Indication: PROPHYLAXIS
     Dosage: 100 MG, DAILY (CUMULATIVE DOSE TO FIRST REACTION WAS 1500 MG)
     Route: 048
     Dates: start: 20171010
  11. ZOPICLON [Concomitant]
     Active Substance: ZOPICLONE
     Indication: SLEEP DISORDER THERAPY
     Dosage: 7.5 MG, DAILY
     Route: 048
     Dates: start: 20171010
  12. VINCRISTINE [Suspect]
     Active Substance: VINCRISTINE
     Indication: B-CELL LYMPHOMA
     Dosage: 3.12 MG, 1X/DAY
     Route: 042
     Dates: start: 20171012, end: 20171012
  13. CYCLOPHOSPHAMIDE. [Suspect]
     Active Substance: CYCLOPHOSPHAMIDE
     Indication: B-CELL LYMPHOMA
     Dosage: 1400 MG, 1X/DAY
     Route: 042
     Dates: start: 20171012, end: 20171012
  14. PREDNISOLONE. [Suspect]
     Active Substance: PREDNISOLONE
     Dosage: 20 MG, 1X/DAY (CUMULATIVE DOSE TO FIRST REACTION: 500 MG)
     Route: 048
     Dates: start: 20171113
  15. AFINITOR [Suspect]
     Active Substance: EVEROLIMUS
     Dosage: 10 MG, 1X/DAY (CUMULATIVE DOSE TO FIRST REACTION WAS 2260 MG)
     Route: 048
     Dates: start: 20160901, end: 20170126
  16. PREDNISOLONE. [Suspect]
     Active Substance: PREDNISOLONE
     Dosage: 500 MG, 1X/DAY
     Route: 048
     Dates: start: 20171012, end: 20171012
  17. PEGFILGRASTIM [Suspect]
     Active Substance: PEGFILGRASTIM
     Indication: B-CELL LYMPHOMA
     Dosage: 6 MG, DAILY
     Route: 058
     Dates: start: 20171012, end: 20171012
  18. PEGFILGRASTIM [Suspect]
     Active Substance: PEGFILGRASTIM
     Dosage: 6 MG, DAILY
     Route: 058
     Dates: start: 20171015, end: 20171015

REACTIONS (4)
  - Pneumonitis [Not Recovered/Not Resolved]
  - Product use in unapproved indication [Unknown]
  - Dyspnoea [Not Recovered/Not Resolved]
  - Pneumonia [Recovered/Resolved]

NARRATIVE: CASE EVENT DATE: 20170126
